FAERS Safety Report 22168288 (Version 2)
Quarter: 2023Q2

REPORT INFORMATION
  Report Type: Spontaneous
  Country: US (occurrence: US)
  Receive Date: 20230403
  Receipt Date: 20230407
  Transmission Date: 20230721
  Serious: No
  Sender: FDA-Public Use
  Company Number: US-PFIZER INC-202300141103

PATIENT
  Age: 37 Year
  Sex: Female
  Weight: 86.18 kg

DRUGS (1)
  1. NURTEC ODT [Suspect]
     Active Substance: RIMEGEPANT SULFATE
     Indication: Migraine
     Dosage: 75 MG, ALTERNATE DAY (1 TABLET UNDER THE TONGUE EVERY OTHER DAY)
     Route: 060

REACTIONS (4)
  - Drug ineffective [Unknown]
  - Malaise [Unknown]
  - Feeling abnormal [Recovered/Resolved]
  - Confusional state [Not Recovered/Not Resolved]
